FAERS Safety Report 9104167 (Version 1)
Quarter: 2013Q1

REPORT INFORMATION
  Report Type: Spontaneous
  Country: HU (occurrence: HU)
  Receive Date: 20130219
  Receipt Date: 20130219
  Transmission Date: 20140127
  Serious: Yes (Hospitalization)
  Sender: FDA-Public Use
  Company Number: HU-TEVA-386998ISR

PATIENT
  Age: 72 Year
  Sex: Female

DRUGS (4)
  1. BISOPROLOL [Suspect]
     Indication: HYPERTENSION
     Dosage: 5 MILLIGRAM DAILY;
     Route: 048
  2. IRBESARTAN [Concomitant]
     Dosage: 150 MILLIGRAM DAILY;
     Route: 048
  3. ATORVASTATIN [Concomitant]
     Dosage: 20 MILLIGRAM DAILY;
     Route: 048
  4. THYROXIN [Concomitant]
     Dosage: 150 MICROGRAM DAILY;
     Route: 048

REACTIONS (1)
  - Stress cardiomyopathy [Recovered/Resolved]
